FAERS Safety Report 4518959-0 (Version None)
Quarter: 2004Q4

REPORT INFORMATION
  Report Type: 
  Country: None (occurrence: None)
  Receive Date: 20041201
  Receipt Date: 20041118
  Transmission Date: 20050328
  Serious: Yes (Hospitalization)
  Sender: FDA-Public Use
  Company Number: 2004220428FR

PATIENT
  Age: 34 Year
  Sex: Male

DRUGS (9)
  1. PREDNISONE [Suspect]
     Indication: ILL-DEFINED DISORDER
     Dosage: 100 MG (DAILY), ORAL
     Route: 048
     Dates: start: 20040420, end: 20040504
  2. ISONIAZID [Suspect]
     Indication: ILL-DEFINED DISORDER
     Dosage: 200 MG (DAILY), ORAL
     Route: 048
     Dates: start: 20040420, end: 20040504
  3. KETOPROFEN NM (KETOPROFEN) [Concomitant]
     Indication: ILL-DEFINED DISORDER
     Dosage: 300 MG (DAILY), ORAL
     Route: 048
     Dates: start: 20040420, end: 20040513
  4. RIFAMPICIN [Suspect]
     Indication: ILL-DEFINED DISORDER
     Dosage: 600 MG (DAILY), ORAL
     Route: 048
     Dates: start: 20040420, end: 20040504
  5. MORPHINE SULFATE [Concomitant]
  6. FLUOXETINE [Concomitant]
  7. BCG VACCINE 9BCG VACCINE) [Concomitant]
  8. DICLOFENAC (DICLOFENAC) [Concomitant]
  9. PROPOFAN (CAFFEINE , CARBASALATE CALCIUM [Concomitant]

REACTIONS (2)
  - ANXIETY [None]
  - MANIA [None]
